FAERS Safety Report 11905557 (Version 1)
Quarter: 2016Q1

REPORT INFORMATION
  Report Type: Spontaneous
  Country: FR (occurrence: FR)
  Receive Date: 20160109
  Receipt Date: 20160109
  Transmission Date: 20160608
  Serious: Yes (Other)
  Sender: FDA-Public Use
  Company Number: FR-ACCORD-036942

PATIENT
  Age: 69 Year
  Sex: Female

DRUGS (10)
  1. ONDANSETRON [Concomitant]
     Active Substance: ONDANSETRON
     Indication: PREMEDICATION
  2. PARACETAMOL [Concomitant]
     Active Substance: ACETAMINOPHEN
  3. PERJETA [Suspect]
     Active Substance: PERTUZUMAB
     Indication: BREAST CANCER METASTATIC
     Dosage: 8 INJECTIONS
     Route: 042
     Dates: start: 20150312, end: 20150806
  4. CITALOPRAM [Concomitant]
     Active Substance: CITALOPRAM HYDROBROMIDE
  5. DOCETAXEL ACCORD [Suspect]
     Active Substance: DOCETAXEL
     Indication: BREAST CANCER METASTATIC
     Dosage: 6 INJECTIONS
     Route: 042
     Dates: start: 20150312, end: 20150625
  6. SIMVASTATIN. [Concomitant]
     Active Substance: SIMVASTATIN
     Dosage: 10 MG
  7. SOLU-MEDROL [Concomitant]
     Active Substance: METHYLPREDNISOLONE SODIUM SUCCINATE
     Indication: PREMEDICATION
  8. HERCEPTIN [Suspect]
     Active Substance: TRASTUZUMAB
     Indication: BREAST CANCER METASTATIC
     Dosage: 9 INJECTIONS
     Route: 042
     Dates: start: 20150312, end: 20150924
  9. CETIRIZINE [Concomitant]
     Active Substance: CETIRIZINE HYDROCHLORIDE
  10. SERESTA [Concomitant]
     Active Substance: OXAZEPAM

REACTIONS (2)
  - Neutropenia [Recovered/Resolved]
  - Ejection fraction decreased [Recovered/Resolved]

NARRATIVE: CASE EVENT DATE: 20150512
